FAERS Safety Report 25913802 (Version 1)
Quarter: 2025Q4

REPORT INFORMATION
  Report Type: Spontaneous
  Country: EU (occurrence: EU)
  Receive Date: 20251013
  Receipt Date: 20251013
  Transmission Date: 20260118
  Serious: Yes (Death, Other)
  Sender: BRISTOL-MYERS SQUIBB COMPANY
  Company Number: EU-BRISTOL-MYERS SQUIBB COMPANY-2025-139155

PATIENT
  Age: 82 Year
  Sex: Male

DRUGS (13)
  1. AZACITIDINE [Suspect]
     Active Substance: AZACITIDINE
     Indication: Product used for unknown indication
     Dosage: 75 MG/M? D1-D7
  2. AZACITIDINE [Suspect]
     Active Substance: AZACITIDINE
  3. AZACITIDINE [Suspect]
     Active Substance: AZACITIDINE
  4. AZACITIDINE [Suspect]
     Active Substance: AZACITIDINE
     Dosage: 50%
     Dates: start: 202205, end: 202208
  5. AZACITIDINE [Suspect]
     Active Substance: AZACITIDINE
     Dosage: 50%
  6. AZACITIDINE [Suspect]
     Active Substance: AZACITIDINE
     Dosage: 50%
     Dates: start: 202209, end: 202307
  7. VENETOCLAX [Suspect]
     Active Substance: VENETOCLAX
     Indication: Product used for unknown indication
     Dosage: D1-D14
     Dates: start: 202201
  8. VENETOCLAX [Suspect]
     Active Substance: VENETOCLAX
  9. VENETOCLAX [Suspect]
     Active Substance: VENETOCLAX
     Dosage: D1-D14
     Dates: start: 202205, end: 202208
  10. VENETOCLAX [Suspect]
     Active Substance: VENETOCLAX
     Dosage: D1-D10
  11. VENETOCLAX [Suspect]
     Active Substance: VENETOCLAX
     Dosage: D1-D10
     Dates: start: 202209, end: 202307
  12. VENETOCLAX [Suspect]
     Active Substance: VENETOCLAX
     Dates: start: 202307, end: 202311
  13. VENETOCLAX [Suspect]
     Active Substance: VENETOCLAX
     Dosage: DISCONTINUED CYCLE III FROM DAY 6

REACTIONS (1)
  - Death [Fatal]
